FAERS Safety Report 13427428 (Version 3)
Quarter: 2017Q2

REPORT INFORMATION
  Report Type: Spontaneous
  Country: US (occurrence: US)
  Receive Date: 20170411
  Receipt Date: 20170517
  Transmission Date: 20170830
  Serious: No
  Sender: FDA-Public Use
  Company Number: US-GLAXOSMITHKLINE-US2017049941

PATIENT
  Sex: Female
  Weight: 59.86 kg

DRUGS (1)
  1. VENTOLIN HFA [Suspect]
     Active Substance: ALBUTEROL SULFATE
     Indication: ASTHMA
     Dosage: 2 PUFF(S), QID PRN
     Route: 048
     Dates: start: 20151102, end: 20161006

REACTIONS (2)
  - Intentional product misuse [Unknown]
  - Product use issue [Unknown]
